FAERS Safety Report 4317181-0 (Version None)
Quarter: 2004Q1

REPORT INFORMATION
  Report Type: 
  Country: None (occurrence: None)
  Receive Date: 20040312
  Receipt Date: 20040227
  Transmission Date: 20041129
  Serious: Yes (Hospitalization)
  Sender: FDA-Public Use
  Company Number: 2004AP01288

PATIENT
  Age: 76 Year
  Sex: Male

DRUGS (15)
  1. IRESSA [Suspect]
     Indication: NON-SMALL CELL LUNG CANCER
     Dosage: 250 MG DAILY PO
     Route: 048
     Dates: start: 20031203, end: 20031219
  2. IRESSA [Suspect]
     Indication: NON-SMALL CELL LUNG CANCER
     Dosage: 250 MG DAILY PO
     Route: 048
     Dates: start: 20040108, end: 20040114
  3. EUGLUCON [Concomitant]
  4. LENDORM [Concomitant]
  5. ZYLORIC ^FAES^ [Concomitant]
  6. GASMOTIN [Concomitant]
  7. MUCOSTA [Concomitant]
  8. HALFDIGOXIN [Concomitant]
  9. DUROTEP JANSSEN [Concomitant]
  10. PARAPLATIN [Concomitant]
  11. GEMZAR [Concomitant]
  12. CISPLATIN [Concomitant]
  13. IRINOTECAN [Concomitant]
  14. VINORELBINE TARTRATE [Concomitant]
  15. RADIATION THERAPY [Concomitant]

REACTIONS (8)
  - ANOREXIA [None]
  - BLOOD CREATININE INCREASED [None]
  - CHEST X-RAY ABNORMAL [None]
  - MALAISE [None]
  - NAUSEA [None]
  - PNEUMONIA BACTERIAL [None]
  - PYREXIA [None]
  - VOMITING [None]
